FAERS Safety Report 4350017-0 (Version None)
Quarter: 2004Q2

REPORT INFORMATION
  Report Type: 
  Country: None (occurrence: None)
  Receive Date: 20040428
  Receipt Date: 20040428
  Transmission Date: 20050107
  Serious: Yes (Hospitalization)
  Sender: FDA-Public Use
  Company Number: None

PATIENT
  Age: 69 Year
  Sex: Male
  Weight: 66.2252 kg

DRUGS (19)
  1. AMIODARONE HCL [Suspect]
     Indication: ATRIAL FIBRILLATION
     Dosage: 400 MG QD
     Dates: start: 20040308, end: 20040317
  2. AMIODARONE HCL [Suspect]
     Indication: VENTRICULAR TACHYCARDIA
     Dosage: 400 MG QD
     Dates: start: 20040308, end: 20040317
  3. METOPROLOL [Suspect]
     Indication: ATRIAL FIBRILLATION
     Dosage: 75 MG TID
     Dates: start: 20040308, end: 20040317
  4. ACETAMINOPHEN [Concomitant]
  5. ALBUTEROL  3/IPRATROP [Concomitant]
  6. ALBUTEROL SULFATE AND IPRATROPIUM BROMIDE [Concomitant]
  7. AMIODARONE HCL (GENEVA) [Concomitant]
  8. LANOXIN [Concomitant]
  9. EPIPEN [Concomitant]
  10. FERROUS SO4 [Concomitant]
  11. FLUNISOLIDE [Concomitant]
  12. LOVASTATIN [Concomitant]
  13. METOCLOPRAMIDE HCL [Concomitant]
  14. METOPROLOL TARTRATE [Concomitant]
  15. NYSTATIN [Concomitant]
  16. OMEPRAZOLE [Concomitant]
  17. PHENYLEPHRINE HCL [Concomitant]
  18. RANITIDINE HCL [Concomitant]
  19. COUMADIN [Concomitant]

REACTIONS (4)
  - CARDIAC DISORDER [None]
  - FEELING ABNORMAL [None]
  - HYPERHIDROSIS [None]
  - NAUSEA [None]
